FAERS Safety Report 15144238 (Version 1)
Quarter: 2018Q3

REPORT INFORMATION
  Report Type: Spontaneous
  Country: DE (occurrence: DE)
  Receive Date: 20180713
  Receipt Date: 20180713
  Transmission Date: 20181010
  Serious: Yes (Other)
  Sender: FDA-Public Use
  Company Number: DE-ASTRAZENECA-2018SE87687

PATIENT
  Age: 46 Year
  Sex: Female

DRUGS (5)
  1. BEVACIZUMAB. [Suspect]
     Active Substance: BEVACIZUMAB
     Indication: BREAST CANCER FEMALE
     Dosage: 10 MG/M2, EVERY 2 WEEKS
     Route: 065
     Dates: start: 2016, end: 2017
  2. CAPECITABINE. [Concomitant]
     Active Substance: CAPECITABINE
     Indication: BREAST CANCER FEMALE
     Dosage: 2G/M2 1?14, EVERT 3 WEEKS
     Dates: start: 2017
  3. FULVESTRANT. [Suspect]
     Active Substance: FULVESTRANT
     Dosage: 500MG DAY 1, 15, 29, EVERY FOUR WEEKS
     Route: 030
     Dates: start: 201602, end: 201605
  4. PACLITAXEL. [Suspect]
     Active Substance: PACLITAXEL
     Indication: BREAST CANCER FEMALE
     Dosage: 90 MG/M2, DAY 1, 8, 15 EVERY FOUR WEEK
     Route: 065
     Dates: start: 2016, end: 2017
  5. DENOSUMAB [Concomitant]
     Active Substance: DENOSUMAB

REACTIONS (9)
  - Metastases to lymph nodes [Unknown]
  - Neoplasm [Unknown]
  - Musculoskeletal pain [Unknown]
  - Chest pain [Unknown]
  - Metastases to bone [Unknown]
  - Peripheral swelling [Unknown]
  - Brachiocephalic vein thrombosis [Unknown]
  - Malignant neoplasm progression [Unknown]
  - Tumour pain [Unknown]

NARRATIVE: CASE EVENT DATE: 2012
